FAERS Safety Report 25037674 (Version 2)
Quarter: 2025Q2

REPORT INFORMATION
  Report Type: Report from Study
  Country: BR (occurrence: BR)
  Receive Date: 20250304
  Receipt Date: 20250401
  Transmission Date: 20250716
  Serious: Yes (Other)
  Sender: NOVARTIS
  Company Number: BR-002147023-NVSC2025BR035254

PATIENT
  Sex: Female

DRUGS (2)
  1. RIBOCICLIB [Suspect]
     Active Substance: RIBOCICLIB
     Indication: Breast cancer
     Route: 065
  2. RIBOCICLIB [Suspect]
     Active Substance: RIBOCICLIB
     Indication: Metastases to bone
     Dosage: 3 DOSAGE FORM, QD
     Route: 065

REACTIONS (14)
  - Metastases to bone [Unknown]
  - Metastases to central nervous system [Unknown]
  - Laboratory test abnormal [Unknown]
  - Asthenia [Unknown]
  - Blood test abnormal [Unknown]
  - Fungal infection [Unknown]
  - Feeling abnormal [Unknown]
  - Burns second degree [Unknown]
  - Decreased immune responsiveness [Unknown]
  - Crying [Unknown]
  - Depressed mood [Unknown]
  - Fear of falling [Unknown]
  - Pain [Recovering/Resolving]
  - Gait disturbance [Unknown]
